FAERS Safety Report 9068673 (Version 1)
Quarter: 2013Q1

REPORT INFORMATION
  Report Type: Spontaneous
  Country: US (occurrence: None)
  Receive Date: 20130212
  Receipt Date: 20130212
  Transmission Date: 20140127
  Serious: Yes (Other)
  Sender: FDA-Public Use
  Company Number: None

PATIENT
  Age: 56 Year
  Sex: Male
  Weight: 83.92 kg

DRUGS (1)
  1. LIVALO 2MG KOWA/ LILLY [Suspect]
     Indication: BLOOD CHOLESTEROL INCREASED
     Dosage: 2MG  1 DAILY
     Dates: start: 20130204, end: 20130206

REACTIONS (3)
  - Back pain [None]
  - Musculoskeletal pain [None]
  - Pain in extremity [None]
